FAERS Safety Report 12079559 (Version 1)
Quarter: 2016Q1

REPORT INFORMATION
  Report Type: Spontaneous
  Country: GB (occurrence: GB)
  Receive Date: 20160216
  Receipt Date: 20160216
  Transmission Date: 20160526
  Serious: Yes (Other)
  Sender: FDA-Public Use
  Company Number: GB-PFIZER INC-2016083816

PATIENT
  Age: 24 Year
  Sex: Female

DRUGS (2)
  1. CHAMPIX [Suspect]
     Active Substance: VARENICLINE TARTRATE
     Indication: SMOKING CESSATION THERAPY
     Dosage: 0.5MG IN THE MORNING TITRATED UP TO 1MG TWICE A DAY AS PER PRESCRIBING INSTRUCTIONS
     Route: 048
     Dates: start: 20160120, end: 201601
  2. CHAMPIX [Interacting]
     Active Substance: VARENICLINE TARTRATE
     Dosage: 1 MG, 2X/DAY
     Route: 048
     Dates: start: 201601, end: 20160130

REACTIONS (7)
  - Nausea [Recovering/Resolving]
  - Dizziness [Recovering/Resolving]
  - Malaise [Recovering/Resolving]
  - Feeling drunk [Recovered/Resolved]
  - Palpitations [Recovering/Resolving]
  - Hangover [Recovered/Resolved]
  - Alcohol interaction [Unknown]

NARRATIVE: CASE EVENT DATE: 201601
